FAERS Safety Report 6440750-9 (Version None)
Quarter: 2009Q4

REPORT INFORMATION
  Report Type: 
  Country: None (occurrence: None)
  Receive Date: 20091116
  Receipt Date: 20091111
  Transmission Date: 20100525
  Serious: Yes (Hospitalization)
  Sender: FDA-Public Use
  Company Number: CA-BAYER-200933543NA

PATIENT
  Age: 85 Year
  Sex: Female
  Weight: 94 kg

DRUGS (12)
  1. AVELOX [Suspect]
     Indication: CHRONIC OBSTRUCTIVE PULMONARY DISEASE
     Dosage: TOTAL DAILY DOSE: 400 MG  UNIT DOSE: 400 MG
     Route: 048
     Dates: start: 20090512
  2. ACCUPRIL [Concomitant]
  3. ACCUPRIL [Concomitant]
  4. APO-AMILZIDE [Concomitant]
  5. APO-ATENOL [Concomitant]
  6. APO-SALVENT [Concomitant]
  7. DOCUSATE SODIUM [Concomitant]
  8. ENTROPHEN [Concomitant]
  9. FLOVENT HFA [Concomitant]
  10. LIPITOR [Concomitant]
  11. SPIRIVA [Concomitant]
     Route: 055
  12. TYLENOL W/ CODEINE NO. 3 [Concomitant]

REACTIONS (1)
  - HOSPITALISATION [None]
